FAERS Safety Report 8250046-0 (Version None)
Quarter: 2012Q1

REPORT INFORMATION
  Report Type: 
  Country: None (occurrence: None)
  Receive Date: 20120319
  Receipt Date: 20100305
  Transmission Date: 20120608
  Serious: Yes (Hospitalization)
  Sender: FDA-Public Use
  Company Number: PHEH2010US02913

PATIENT
  Age: 53 Year
  Sex: Male

DRUGS (3)
  1. LUPRON [Concomitant]
  2. TEKTURNA HCT [Suspect]
     Indication: HYPERTENSION
     Dosage: 300/12.5 MG, QD, ORAL
     Route: 048
     Dates: start: 20090205
  3. VICODIN [Concomitant]

REACTIONS (1)
  - ANGIOEDEMA [None]
